FAERS Safety Report 6196349-5 (Version None)
Quarter: 2009Q2

REPORT INFORMATION
  Report Type: 
  Country: None (occurrence: None)
  Receive Date: 20090518
  Receipt Date: 20090518
  Transmission Date: 20091009
  Serious: Yes (Hospitalization)
  Sender: FDA-Public Use
  Company Number: None

PATIENT
  Sex: Male
  Weight: 76 kg

DRUGS (10)
  1. CYCLOPHOSPHAMIDE [Suspect]
     Dosage: 1358 MG
  2. DOXIL [Suspect]
     Dosage: 72 MG
  3. NEULASTA [Suspect]
     Dosage: 6 MG
  4. PREDNISONE TAB [Suspect]
     Dosage: 350 MG
  5. RITUXIMAB (MOAB C2B8 ANTI CD20, CHIMERIC) [Suspect]
     Dosage: 679 MG
  6. VINCRISTINE SULFATE [Suspect]
     Dosage: 2 MG
  7. FLEXIDINE [Concomitant]
  8. SIMVASTATIN [Concomitant]
  9. SLEEP AID [Concomitant]
  10. VERAPAMIL [Concomitant]

REACTIONS (1)
  - FEBRILE NEUTROPENIA [None]
